FAERS Safety Report 4429248-7 (Version None)
Quarter: 2004Q3

REPORT INFORMATION
  Report Type: 
  Country: None (occurrence: None)
  Receive Date: 20040817
  Receipt Date: 20040817
  Transmission Date: 20050211
  Serious: No
  Sender: FDA-Public Use
  Company Number: None

PATIENT
  Sex: Female

DRUGS (1)
  1. COUMADIN [Suspect]
     Indication: ANTICOAGULANT THERAPY
     Dosage: 7.5 MG DAILY ORAL
     Route: 048
     Dates: start: 20040811, end: 20040814

REACTIONS (1)
  - INTERNATIONAL NORMALISED RATIO INCREASED [None]
